FAERS Safety Report 12647228 (Version 1)
Quarter: 2016Q3

REPORT INFORMATION
  Report Type: Spontaneous
  Country: US (occurrence: None)
  Receive Date: 20160811
  Receipt Date: 20160811
  Transmission Date: 20161109
  Serious: Yes (Disabling)
  Sender: FDA-Public Use
  Company Number: None

PATIENT
  Age: 32 Year
  Sex: Female
  Weight: 63.5 kg

DRUGS (3)
  1. HYDROXYUREA, 1000 MG [Suspect]
     Active Substance: HYDROXYUREA
     Indication: SICKLE CELL ANAEMIA WITH CRISIS
     Route: 048
  2. HYDROXYUREA, 1000 MG [Suspect]
     Active Substance: HYDROXYUREA
     Indication: PROPHYLAXIS
     Route: 048
  3. MULTIVITAMIN [Concomitant]
     Active Substance: VITAMINS

REACTIONS (11)
  - Dry skin [None]
  - Alopecia [None]
  - Onychomadesis [None]
  - Nausea [None]
  - Confusional state [None]
  - Vision blurred [None]
  - Platelet count decreased [None]
  - Contusion [None]
  - Amnesia [None]
  - Urine output increased [None]
  - Neurological symptom [None]

NARRATIVE: CASE EVENT DATE: 20111006
